FAERS Safety Report 9992367 (Version 1)
Quarter: 2014Q1

REPORT INFORMATION
  Report Type: Spontaneous
  Country: US (occurrence: US)
  Receive Date: 20140310
  Receipt Date: 20140310
  Transmission Date: 20141002
  Serious: Yes (Other)
  Sender: FDA-Public Use
  Company Number: US-GLAXOSMITHKLINE-A1063921A

PATIENT
  Age: 66 Year
  Sex: Male
  Weight: 132.3 kg

DRUGS (1)
  1. AVANDIA [Suspect]
     Indication: DIABETES MELLITUS
     Dosage: 8MG PER DAY
     Route: 048
     Dates: end: 20071130

REACTIONS (5)
  - Adverse event [Unknown]
  - Acute myocardial infarction [Unknown]
  - Aortic aneurysm [Unknown]
  - Ventricular tachycardia [Unknown]
  - Atrial fibrillation [Unknown]
